FAERS Safety Report 4290461-3 (Version None)
Quarter: 2004Q1

REPORT INFORMATION
  Report Type: 
  Country: None (occurrence: None)
  Receive Date: 20040126
  Receipt Date: 20031017
  Transmission Date: 20041129
  Serious: No
  Sender: FDA-Public Use
  Company Number: USA030948123

PATIENT
  Age: 74 Year
  Sex: Female
  Weight: 73.9363 kg

DRUGS (7)
  1. FORTEO [Suspect]
     Dates: start: 20030903
  2. PLAQUENIL [Concomitant]
  3. MAXZIDE [Concomitant]
  4. PRILOSEC [Concomitant]
  5. CALCIUM [Concomitant]
  6. VITAMIN CAP [Concomitant]
  7. BEXTRA [Concomitant]

REACTIONS (3)
  - HEADACHE [None]
  - INJECTION SITE HAEMORRHAGE [None]
  - NAUSEA [None]
